FAERS Safety Report 19394228 (Version 1)
Quarter: 2021Q2

REPORT INFORMATION
  Report Type: Spontaneous
  Country: US (occurrence: US)
  Receive Date: 20210609
  Receipt Date: 20210609
  Transmission Date: 20210717
  Serious: Yes (Other)
  Sender: FDA-Public Use
  Company Number: US-MYLANLABS-2021M1033098

PATIENT
  Age: 58 Year
  Sex: Male

DRUGS (11)
  1. MICONAZOLE NITRATE. [Suspect]
     Active Substance: MICONAZOLE NITRATE
     Indication: TINEA VERSICOLOUR
  2. FLUCONAZOLE. [Concomitant]
     Active Substance: FLUCONAZOLE
     Indication: DERMATITIS
     Dosage: 200 MILLIGRAM, QD ON DAY 1
     Route: 048
  3. CETIRIZINE [Suspect]
     Active Substance: CETIRIZINE HYDROCHLORIDE
     Indication: PRURITUS
     Dosage: 10 MILLIGRAM, QD
     Route: 065
  4. CETIRIZINE [Suspect]
     Active Substance: CETIRIZINE HYDROCHLORIDE
     Indication: DERMATITIS
  5. MICONAZOLE NITRATE. [Suspect]
     Active Substance: MICONAZOLE NITRATE
     Indication: DERMATITIS
     Dosage: UNK
     Route: 061
  6. FLUCONAZOLE. [Concomitant]
     Active Substance: FLUCONAZOLE
     Dosage: 100 MILLIGRAM, QD FOR 6 ADDITIONAL DAYS
     Route: 048
  7. BETAMETHASONE. [Suspect]
     Active Substance: BETAMETHASONE
     Indication: DERMATITIS
     Dosage: UNK
     Route: 061
  8. IPILIMUMAB [Concomitant]
     Active Substance: IPILIMUMAB
     Indication: METASTATIC MALIGNANT MELANOMA
     Dosage: 3 MILLIGRAM/KILOGRAM, Q21D
     Route: 065
  9. PEMBROLIZUMAB. [Concomitant]
     Active Substance: PEMBROLIZUMAB
     Indication: METASTATIC MALIGNANT MELANOMA
     Dosage: 200 MILLIGRAM, Q21D
     Route: 065
  10. PREDNISONE. [Suspect]
     Active Substance: PREDNISONE
     Indication: DERMATITIS
     Dosage: 50 MILLIGRAM, QD
     Route: 048
  11. BETAMETHASONE. [Suspect]
     Active Substance: BETAMETHASONE
     Indication: TINEA VERSICOLOUR

REACTIONS (4)
  - Tinea versicolour [Recovered/Resolved]
  - False negative investigation result [Unknown]
  - Condition aggravated [Recovered/Resolved]
  - Drug ineffective [Unknown]
